FAERS Safety Report 16509186 (Version 1)
Quarter: 2019Q3

REPORT INFORMATION
  Report Type: Spontaneous
  Country: US (occurrence: US)
  Receive Date: 20190521
  Receipt Date: 20190521
  Transmission Date: 20191004
  Serious: Yes (Other)
  Sender: FDA-Public Use
  Company Number: None

PATIENT
  Age: 53 Year
  Sex: Male
  Weight: 62 kg

DRUGS (1)
  1. INFLECTRA [Suspect]
     Active Substance: INFLIXIMAB-DYYB
     Dosage: ?          OTHER FREQUENCY:EVERY 6 WKS;?
     Route: 042
     Dates: start: 20190226, end: 20190409

REACTIONS (3)
  - Oral herpes [None]
  - Arthralgia [None]
  - Product substitution issue [None]
